FAERS Safety Report 13927975 (Version 2)
Quarter: 2017Q3

REPORT INFORMATION
  Report Type: Spontaneous
  Country: ZA (occurrence: ZA)
  Receive Date: 20170901
  Receipt Date: 20170926
  Transmission Date: 20171127
  Serious: Yes (Other)
  Sender: FDA-Public Use
  Company Number: ZA-ELI_LILLY_AND_COMPANY-ZA201708012032

PATIENT
  Sex: Female

DRUGS (2)
  1. CYMGEN [Suspect]
     Active Substance: DULOXETINE HYDROCHLORIDE
     Indication: PRODUCT USED FOR UNKNOWN INDICATION
     Dosage: 30 MG, UNKNOWN
     Route: 065
  2. CYMGEN [Suspect]
     Active Substance: DULOXETINE HYDROCHLORIDE
     Dosage: 60 MG, UNKNOWN
     Route: 065

REACTIONS (38)
  - Swelling face [Unknown]
  - Cough [Unknown]
  - Insomnia [Unknown]
  - Hot flush [Unknown]
  - Hypertension [Unknown]
  - Chills [Unknown]
  - Fatigue [Unknown]
  - Pruritus [Unknown]
  - Osteoarthritis [Unknown]
  - Insulin resistance [Unknown]
  - Thirst [Unknown]
  - Contusion [Unknown]
  - Swelling [Unknown]
  - Alopecia [Unknown]
  - Arthralgia [Unknown]
  - Back pain [Unknown]
  - Weight increased [Unknown]
  - Restless legs syndrome [Unknown]
  - Dysphagia [Unknown]
  - Hiatus hernia [Unknown]
  - Irritability [Unknown]
  - Coordination abnormal [Unknown]
  - Nightmare [Unknown]
  - Agitation [Unknown]
  - Uterine cancer [Unknown]
  - Carpal tunnel syndrome [Not Recovered/Not Resolved]
  - Vomiting projectile [Unknown]
  - Blood glucose increased [Unknown]
  - Dry mouth [Unknown]
  - Dizziness [Unknown]
  - Tremor [Unknown]
  - Gait disturbance [Unknown]
  - Functional gastrointestinal disorder [Unknown]
  - Dysphonia [Unknown]
  - Dry throat [Unknown]
  - Renal pain [Unknown]
  - Dry skin [Unknown]
  - Skin atrophy [Unknown]
